FAERS Safety Report 7212452-2 (Version None)
Quarter: 2011Q1

REPORT INFORMATION
  Report Type: 
  Country: None (occurrence: None)
  Receive Date: 20110106
  Receipt Date: 20101231
  Transmission Date: 20110831
  Serious: Yes (Death)
  Sender: FDA-Public Use
  Company Number: US-PFIZER INC-2011001468

PATIENT
  Age: 86 Year
  Sex: Female

DRUGS (4)
  1. CLONIDINE [Suspect]
     Dosage: UNK
     Route: 048
  2. METFORMIN HCL [Suspect]
     Dosage: UNK
     Route: 048
  3. DILTIAZEM [Suspect]
     Dosage: UNK
     Route: 048
  4. GLIPIZIDE [Suspect]
     Dosage: UNK
     Route: 048

REACTIONS (2)
  - COMPLETED SUICIDE [None]
  - INTENTIONAL DRUG MISUSE [None]
